FAERS Safety Report 12283019 (Version 1)
Quarter: 2016Q2

REPORT INFORMATION
  Report Type: Report from Study
  Country: ES (occurrence: ES)
  Receive Date: 20160419
  Receipt Date: 20160419
  Transmission Date: 20160815
  Serious: Yes (Hospitalization)
  Sender: FDA-Public Use
  Company Number: ES-SA-2016SA076152

PATIENT
  Age: 65 Year
  Sex: Male

DRUGS (2)
  1. ALDACTONE [Interacting]
     Active Substance: SPIRONOLACTONE
     Indication: CIRRHOSIS ALCOHOLIC
     Dosage: 100 MG, DOS VECES AL DIA
     Route: 048
     Dates: start: 2013, end: 20140919
  2. SEGURIL [Suspect]
     Active Substance: FUROSEMIDE
     Indication: CIRRHOSIS ALCOHOLIC
     Dosage: 120MG EN DOS VECES AL DIA  (80-40-0)
     Route: 048
     Dates: start: 2013, end: 20140919

REACTIONS (2)
  - Hepatic encephalopathy [Recovered/Resolved]
  - Drug interaction [Unknown]

NARRATIVE: CASE EVENT DATE: 20140918
